FAERS Safety Report 8417131-1 (Version None)
Quarter: 2012Q2

REPORT INFORMATION
  Report Type: 
  Country: None (occurrence: None)
  Receive Date: 20120606
  Receipt Date: 20120529
  Transmission Date: 20120825
  Serious: Yes (Hospitalization)
  Sender: FDA-Public Use
  Company Number: US-ACTELION-A-US2012-66489

PATIENT

DRUGS (5)
  1. TRACLEER [Suspect]
     Indication: PRODUCT USED FOR UNKNOWN INDICATION
     Dosage: UNK
     Route: 048
  2. LASIX [Concomitant]
  3. SILDENAFIL [Concomitant]
  4. FLOLAN [Concomitant]
  5. COUMADIN [Concomitant]

REACTIONS (2)
  - CHOLELITHOTOMY [None]
  - CHOLELITHIASIS [None]
